FAERS Safety Report 15125775 (Version 1)
Quarter: 2018Q3

REPORT INFORMATION
  Report Type: Spontaneous
  Country: US (occurrence: US)
  Receive Date: 20180710
  Receipt Date: 20180710
  Transmission Date: 20181010
  Serious: No
  Sender: FDA-Public Use
  Company Number: US-VIFOR (INTERNATIONAL) INC.-VIT-2016-01915

PATIENT
  Age: 68 Year
  Sex: Male

DRUGS (19)
  1. LANTUS [Concomitant]
     Active Substance: INSULIN GLARGINE
  2. ATORVASTATIN CALCIUM. [Concomitant]
     Active Substance: ATORVASTATIN CALCIUM
  3. ACETYLSALICYLIC ACID [Concomitant]
     Active Substance: ASPIRIN
  4. LISINOPRIL. [Concomitant]
     Active Substance: LISINOPRIL
  5. ENTRESTO [Concomitant]
     Active Substance: SACUBITRIL\VALSARTAN
  6. COUMADINE [Concomitant]
     Active Substance: WARFARIN SODIUM
  7. SODIUM BICARBONATE. [Concomitant]
     Active Substance: SODIUM BICARBONATE
  8. GLIPIZIDE. [Concomitant]
     Active Substance: GLIPIZIDE
  9. VELTASSA [Suspect]
     Active Substance: PATIROMER
     Indication: HYPERKALAEMIA
     Route: 048
     Dates: start: 20160302
  10. METOPROLOL TARTRATE. [Concomitant]
     Active Substance: METOPROLOL TARTRATE
  11. TRADJENTA [Concomitant]
     Active Substance: LINAGLIPTIN
  12. LANTUS SOLOSTAR [Concomitant]
     Active Substance: INSULIN GLARGINE
  13. HUMALOG KWIKPEN [Concomitant]
     Active Substance: INSULIN LISPRO
  14. ISOSORBIDE MONONITRATE. [Concomitant]
     Active Substance: ISOSORBIDE MONONITRATE
  15. ISOSORBIDE DINITRATE. [Concomitant]
     Active Substance: ISOSORBIDE DINITRATE
  16. FENOFIBRIC ACID. [Concomitant]
     Active Substance: FENOFIBRIC ACID
  17. HUMALOG [Concomitant]
     Active Substance: INSULIN LISPRO
  18. AMIODARONE HYDROCHLORIDE. [Concomitant]
     Active Substance: AMIODARONE HYDROCHLORIDE
  19. LASIX [Concomitant]
     Active Substance: FUROSEMIDE

REACTIONS (1)
  - Diarrhoea [Not Recovered/Not Resolved]

NARRATIVE: CASE EVENT DATE: 201603
